FAERS Safety Report 8349867 (Version 2)
Quarter: 2013Q3

REPORT INFORMATION
  Report Type: Report from Study
  Country: MX (occurrence: MX)
  Receive Date: 20120123
  Receipt Date: 20130705
  Transmission Date: 20140515
  Serious: Yes (Other)
  Sender: FDA-Public Use
  Company Number: PHHY2012MX003448

PATIENT
  Age: 88 Year
  Sex: Male

DRUGS (8)
  1. EXELON PATCH [Suspect]
     Indication: DEMENTIA ALZHEIMER^S TYPE
     Dosage: 4.6 MG (PATCH5 CM2) PER DAY
     Route: 062
     Dates: start: 20110115
  2. ENALAPRIL [Concomitant]
     Dosage: 1 DF, QD
     Route: 048
  3. DIGOXIN [Concomitant]
     Dosage: 0.5 DF, QD
     Route: 048
  4. OMEPRAZOL [Concomitant]
     Dosage: 1 DF, QD
     Route: 048
  5. NIMODIPINE [Concomitant]
     Dosage: 2 DF/DAY
     Route: 048
  6. CLOPIDOGREL [Concomitant]
     Dosage: 1 DF, QD
     Route: 048
  7. METFORMIN [Concomitant]
     Dosage: 0.5 DF, QD
     Route: 048
  8. SERTRALINE [Concomitant]
     Dosage: 1 DF, QD
     Route: 048

REACTIONS (3)
  - Diplegia [Recovering/Resolving]
  - Cerebrovascular accident [Recovering/Resolving]
  - Anger [Recovering/Resolving]
